FAERS Safety Report 24593034 (Version 1)
Quarter: 2024Q4

REPORT INFORMATION
  Report Type: Spontaneous
  Country: US (occurrence: None)
  Receive Date: 20241107
  Receipt Date: 20241107
  Transmission Date: 20250114
  Serious: Yes (Hospitalization)
  Sender: Public
  Company Number: None

PATIENT
  Age: 76 Year
  Sex: Male

DRUGS (1)
  1. APIXABAN [Suspect]
     Active Substance: APIXABAN
     Indication: Atrial fibrillation

REACTIONS (7)
  - Gastrointestinal haemorrhage [None]
  - Melaena [None]
  - Abdominal discomfort [None]
  - Orthostatic intolerance [None]
  - Gastritis [None]
  - Dyspepsia [None]
  - Haemoglobin decreased [None]

NARRATIVE: CASE EVENT DATE: 20240601
